FAERS Safety Report 19961751 (Version 1)
Quarter: 2021Q4

REPORT INFORMATION
  Report Type: Spontaneous
  Country: US (occurrence: US)
  Receive Date: 20211018
  Receipt Date: 20211018
  Transmission Date: 20220303
  Serious: No
  Sender: FDA-Public Use
  Company Number: US-ORGANON-O2110USA001084

PATIENT
  Age: 44 Year
  Sex: Female
  Weight: 114.74 kg

DRUGS (1)
  1. NEXPLANON [Suspect]
     Active Substance: ETONOGESTREL
     Indication: Contraception
     Dosage: 1 IMPLANT IN LEFT ARM FOR EVERY 3 YEARS
     Dates: start: 20210825

REACTIONS (1)
  - Burning sensation [Unknown]

NARRATIVE: CASE EVENT DATE: 20210901
